FAERS Safety Report 12921659 (Version 1)
Quarter: 2016Q4

REPORT INFORMATION
  Report Type: Spontaneous
  Country: US (occurrence: US)
  Receive Date: 20161108
  Receipt Date: 20161108
  Transmission Date: 20170207
  Serious: No
  Sender: FDA-Public Use
  Company Number: US-CREALTA PHARMACEUTICALS-2016S1000020

PATIENT
  Age: 52 Year
  Sex: Male

DRUGS (3)
  1. KRYSTEXXA [Suspect]
     Active Substance: PEGLOTICASE
     Route: 042
  2. KRYSTEXXA [Suspect]
     Active Substance: PEGLOTICASE
     Route: 042
  3. KRYSTEXXA [Suspect]
     Active Substance: PEGLOTICASE
     Indication: GOUT
     Route: 042
     Dates: start: 201104, end: 201104

REACTIONS (1)
  - Blood uric acid increased [Unknown]

NARRATIVE: CASE EVENT DATE: 201105
